FAERS Safety Report 21172698 (Version 1)
Quarter: 2022Q3

REPORT INFORMATION
  Report Type: Report from Study
  Country: CA (occurrence: None)
  Receive Date: 20220804
  Receipt Date: 20220804
  Transmission Date: 20221026
  Serious: Yes (Other)
  Sender: FDA-Public Use
  Company Number: 2022A185251

PATIENT
  Age: 69 Year
  Sex: Female

DRUGS (2)
  1. IMFINZI [Suspect]
     Active Substance: DURVALUMAB
     Indication: Small cell lung cancer extensive stage
     Route: 042
     Dates: start: 20220302, end: 2022
  2. ETOPOSIDE/CARBOPLATIN [Concomitant]
     Indication: Lung neoplasm malignant
     Dates: start: 20220131, end: 20220410

REACTIONS (3)
  - Drug intolerance [Unknown]
  - Asthenia [Unknown]
  - Pneumonitis [Recovered/Resolved]

NARRATIVE: CASE EVENT DATE: 20220101
